FAERS Safety Report 17201303 (Version 3)
Quarter: 2020Q3

REPORT INFORMATION
  Report Type: Report from Study
  Country: US (occurrence: US)
  Receive Date: 20191226
  Receipt Date: 20200710
  Transmission Date: 20201102
  Serious: Yes (Other)
  Sender: FDA-Public Use
  Company Number: US-SA-2019SA353892

PATIENT

DRUGS (8)
  1. DUPILUMAB [Suspect]
     Active Substance: DUPILUMAB
     Indication: ECZEMA
     Dosage: 300 MG, Q2M
     Route: 058
     Dates: start: 20190215
  2. SERTRALINE HCL [Concomitant]
     Active Substance: SERTRALINE HYDROCHLORIDE
     Indication: ANXIETY
     Dosage: 50 MG, 3.5 WEEK
     Route: 048
     Dates: start: 20190924
  3. HYDROXYZINE [Concomitant]
     Active Substance: HYDROXYZINE HYDROCHLORIDE
     Indication: PRURITUS
     Dosage: 50 MG, QW
     Route: 048
     Dates: start: 20190924, end: 20191030
  4. ONDANSETRON [Concomitant]
     Active Substance: ONDANSETRON
     Indication: MORNING SICKNESS
     Dosage: 4 MG, QD
     Route: 048
     Dates: start: 20191030, end: 20191030
  5. CAFFEINE. [Concomitant]
     Active Substance: CAFFEINE
     Dosage: 0.5 SERVING, QD
     Route: 048
     Dates: start: 20191028, end: 20191029
  6. ONDANSETRON [Concomitant]
     Active Substance: ONDANSETRON
     Indication: MORNING SICKNESS
     Dosage: 4 MG, QD
     Route: 048
     Dates: start: 20191028, end: 20191028
  7. PRENATAL VITAMINS [MINERALS NOS;VITAMINS NOS] [Concomitant]
     Active Substance: MINERALS\VITAMINS
     Dosage: 1 DF, QD
     Route: 048
     Dates: start: 20191025
  8. TYLENOL [Concomitant]
     Active Substance: ACETAMINOPHEN
     Indication: HEADACHE
     Dosage: 4 ML, TOTAL
     Route: 048
     Dates: start: 20191029, end: 20191030

REACTIONS (5)
  - Back pain [Unknown]
  - Product use issue [Unknown]
  - Muscle strain [Unknown]
  - Abortion spontaneous [Unknown]
  - Exposure during pregnancy [Unknown]

NARRATIVE: CASE EVENT DATE: 2019
